FAERS Safety Report 23354339 (Version 1)
Quarter: 2024Q1

REPORT INFORMATION
  Report Type: Spontaneous
  Country: US (occurrence: US)
  Receive Date: 20240101
  Receipt Date: 20240101
  Transmission Date: 20240410
  Serious: Yes (Other)
  Sender: FDA-Public Use
  Company Number: US-SA-SAC20231229001051

PATIENT
  Age: 65 Year
  Sex: Male
  Weight: 68.9 kg

DRUGS (22)
  1. DUPIXENT [Suspect]
     Active Substance: DUPILUMAB
     Indication: Asthma
     Dosage: 300 MG, QOW
     Route: 058
  2. TRIAMCINOLONE ACETONIDE [Concomitant]
     Active Substance: TRIAMCINOLONE ACETONIDE
  3. VENTOLIN HFA [Concomitant]
     Active Substance: ALBUTEROL SULFATE
  4. NIFEDIPINE [Concomitant]
     Active Substance: NIFEDIPINE
  5. NAPROXEN [Concomitant]
     Active Substance: NAPROXEN
  6. NADOLOL [Concomitant]
     Active Substance: NADOLOL
  7. LORATADINE [Concomitant]
     Active Substance: LORATADINE
  8. HYOSCYAMINE SULFATE [Concomitant]
     Active Substance: HYOSCYAMINE SULFATE
  9. DOXYCYCLINE HYCLATE [Concomitant]
     Active Substance: DOXYCYCLINE HYCLATE
  10. DICYCLOMINE HYDROCHLORIDE [Concomitant]
     Active Substance: DICYCLOMINE HYDROCHLORIDE
  11. CLOBETASOL PROPIONATE [Concomitant]
     Active Substance: CLOBETASOL PROPIONATE
  12. CALCIPOTRIENE [Concomitant]
     Active Substance: CALCIPOTRIENE
  13. BANOPHEN [Concomitant]
     Active Substance: DIPHENHYDRAMINE HYDROCHLORIDE
  14. ARMODAFINIL [Concomitant]
     Active Substance: ARMODAFINIL
  15. ALFUZOSIN HYDROCHLORIDE [Concomitant]
     Active Substance: ALFUZOSIN HYDROCHLORIDE
  16. AJOVY [Concomitant]
     Active Substance: FREMANEZUMAB-VFRM
  17. ACETAMINOPHEN [Concomitant]
     Active Substance: ACETAMINOPHEN
  18. OPZELURA [Concomitant]
     Active Substance: RUXOLITINIB PHOSPHATE
  19. ROSUVASTATIN CALCIUM [Concomitant]
     Active Substance: ROSUVASTATIN CALCIUM
  20. ITRACONAZOLE [Concomitant]
     Active Substance: ITRACONAZOLE
  21. DULOXETINE HYDROCHLORIDE [Concomitant]
     Active Substance: DULOXETINE HYDROCHLORIDE
  22. CHOLESTYRAMINE [Concomitant]
     Active Substance: CHOLESTYRAMINE

REACTIONS (2)
  - Diverticulitis [Unknown]
  - Medial tibial stress syndrome [Unknown]

NARRATIVE: CASE EVENT DATE: 20231118
